FAERS Safety Report 5129633-4 (Version None)
Quarter: 2006Q4

REPORT INFORMATION
  Report Type: 
  Country: None (occurrence: None)
  Receive Date: 20061012
  Receipt Date: 20060929
  Transmission Date: 20070319
  Serious: Yes (Other)
  Sender: FDA-Public Use
  Company Number: 2006119575

PATIENT
  Age: 65 Year
  Sex: Male

DRUGS (3)
  1. VIAGRA [Suspect]
     Indication: ERECTILE DYSFUNCTION
     Dosage: (100 MG)
  2. CAVERJECT [Suspect]
     Indication: ERECTILE DYSFUNCTION
     Dosage: UNKNOWN, INTRACAVERNOSA
     Route: 017
  3. LESCOL [Concomitant]

REACTIONS (4)
  - BLADDER CANCER [None]
  - METASTASIS [None]
  - PROSTATIC OPERATION [None]
  - WEIGHT DECREASED [None]
